FAERS Safety Report 5100540-6 (Version None)
Quarter: 2006Q3

REPORT INFORMATION
  Report Type: 
  Country: None (occurrence: None)
  Receive Date: 20060909
  Receipt Date: 20060830
  Transmission Date: 20061208
  Serious: Yes (Hospitalization)
  Sender: FDA-Public Use
  Company Number: US-ABBOTT-06P-163-0342778-00

PATIENT
  Sex: Male
  Weight: 86.26 kg

DRUGS (5)
  1. MAVIK [Suspect]
     Indication: BLOOD PRESSURE
     Route: 048
     Dates: start: 20050101
  2. VERAPAMIL [Concomitant]
     Indication: BLOOD PRESSURE
     Route: 048
  3. ACETYLSALICYLIC ACID [Concomitant]
     Indication: ANTICOAGULANT THERAPY
     Route: 048
  4. FISH OIL [Concomitant]
     Indication: DRUG USE FOR UNKNOWN INDICATION
  5. MULTIVITAMIN [Concomitant]
     Indication: DRUG USE FOR UNKNOWN INDICATION

REACTIONS (2)
  - CARDIAC PACEMAKER INSERTION [None]
  - SYNCOPE [None]
